FAERS Safety Report 10094493 (Version 1)
Quarter: 2014Q2

REPORT INFORMATION
  Report Type: Spontaneous
  Country: GB (occurrence: None)
  Receive Date: 20140418
  Receipt Date: 20140418
  Transmission Date: 20141212
  Serious: Yes (Other)
  Sender: FDA-Public Use
  Company Number: 2014-GB-004656

PATIENT
  Age: 22 Year
  Sex: Male

DRUGS (2)
  1. ERWINASE [Suspect]
     Indication: T-CELL LYMPHOMA
  2. ERWINASE [Suspect]
     Indication: ACUTE LYMPHOCYTIC LEUKAEMIA

REACTIONS (3)
  - Hyponatraemia [None]
  - Dyslipidaemia [None]
  - Hyperglycaemia [None]
